FAERS Safety Report 9866753 (Version 1)
Quarter: 2014Q1

REPORT INFORMATION
  Report Type: Spontaneous
  Country: GB (occurrence: GB)
  Receive Date: 20140204
  Receipt Date: 20140204
  Transmission Date: 20141002
  Serious: Yes (Other)
  Sender: FDA-Public Use
  Company Number: GB-BRISTOL-MYERS SQUIBB COMPANY-20120010

PATIENT
  Age: 80 Year
  Sex: Female

DRUGS (1)
  1. ABILIFY TABS 5 MG [Suspect]
     Indication: SCHIZOAFFECTIVE DISORDER
     Dosage: PATIENT PUT ON 7.5MG
     Route: 048

REACTIONS (1)
  - Bipolar disorder [Unknown]
